FAERS Safety Report 8075030-1 (Version None)
Quarter: 2012Q1

REPORT INFORMATION
  Report Type: 
  Country: None (occurrence: None)
  Receive Date: 20120127
  Receipt Date: 20120118
  Transmission Date: 20120608
  Serious: No
  Sender: FDA-Public Use
  Company Number: US-BIOGENIDEC-2012BI002266

PATIENT
  Age: 28 Year
  Sex: Female

DRUGS (3)
  1. TYSABRI [Suspect]
     Indication: MULTIPLE SCLEROSIS
     Route: 042
     Dates: start: 20071023, end: 20080806
  2. TYSABRI [Suspect]
     Route: 042
     Dates: start: 20091222, end: 20101118
  3. TYSABRI [Suspect]
     Route: 042
     Dates: start: 20090226, end: 20090610

REACTIONS (1)
  - MULTIPLE SCLEROSIS RELAPSE [None]
